FAERS Safety Report 10384489 (Version 1)
Quarter: 2014Q3

REPORT INFORMATION
  Report Type: Spontaneous
  Country: AT (occurrence: AT)
  Receive Date: 20140814
  Receipt Date: 20140814
  Transmission Date: 20150326
  Serious: Yes (Hospitalization)
  Sender: FDA-Public Use
  Company Number: PHHY2014AT100403

PATIENT
  Age: 19 Month
  Sex: Female
  Weight: 11 kg

DRUGS (2)
  1. PARACETAMOL [Suspect]
     Active Substance: ACETAMINOPHEN
     Indication: RESPIRATORY TRACT INFECTION
     Dosage: 100 MG/KG, DAILY
     Route: 048
  2. CLARITHROMYCIN. [Concomitant]
     Active Substance: CLARITHROMYCIN
     Indication: RESPIRATORY TRACT INFECTION

REACTIONS (10)
  - Ammonia increased [Recovering/Resolving]
  - Coagulopathy [Recovering/Resolving]
  - Respiratory tract haemorrhage [Recovering/Resolving]
  - Neurological decompensation [Recovered/Resolved]
  - Encephalopathy [Recovered/Resolved]
  - Toxicity to various agents [Recovered/Resolved]
  - Hepatotoxicity [Recovered/Resolved]
  - Diarrhoea [Recovering/Resolving]
  - Somnolence [Recovering/Resolving]
  - Acute hepatic failure [Recovered/Resolved]
